FAERS Safety Report 11082396 (Version 3)
Quarter: 2015Q3

REPORT INFORMATION
  Report Type: Spontaneous
  Country: US (occurrence: US)
  Receive Date: 20150501
  Receipt Date: 20150706
  Transmission Date: 20151125
  Serious: No
  Sender: FDA-Public Use
  Company Number: US-PFIZER INC-2015141708

PATIENT
  Age: 90 Year
  Sex: Male
  Weight: 86 kg

DRUGS (15)
  1. SIMVASTATIN. [Concomitant]
     Active Substance: SIMVASTATIN
     Dosage: 40 MG, UNK
  2. GLIMEPIRIDE. [Concomitant]
     Active Substance: GLIMEPIRIDE
     Indication: DIABETES MELLITUS
     Dosage: 2 MG, 1X/DAY
     Route: 048
  3. FUROSEMIDE. [Concomitant]
     Active Substance: FUROSEMIDE
     Dosage: 20 MG, 2X/DAY
     Route: 048
  4. LYRICA [Suspect]
     Active Substance: PREGABALIN
     Indication: BURNING SENSATION
  5. HYDROCODONE [Suspect]
     Active Substance: HYDROCODONE
     Indication: PAIN
     Dosage: 2 DF, 1X/DAY (7.5-3.25 2 TABLETS)
     Route: 048
  6. LISINOPRIL. [Concomitant]
     Active Substance: LISINOPRIL
     Dosage: 5 MG, 1X/DAY
     Route: 048
  7. HYDROCODONE [Suspect]
     Active Substance: HYDROCODONE
     Indication: DIABETIC NEUROPATHY
  8. METOPROLOL [Concomitant]
     Active Substance: METOPROLOL
     Dosage: 25 MG, 1X/DAY
     Route: 048
  9. ALPHA LIPOIC ACID [Concomitant]
     Active Substance: .ALPHA.-LIPOIC ACID
     Dosage: 600 MG, 1X/DAY
     Route: 048
  10. LYRICA [Suspect]
     Active Substance: PREGABALIN
     Indication: DIABETIC NEUROPATHY
     Dosage: 75 MG, 1X/DAY AT NIGHT
     Route: 048
     Dates: start: 20150418, end: 201504
  11. WARFARIN [Concomitant]
     Active Substance: WARFARIN
     Indication: CARDIAC DISORDER
     Dosage: 4 MG, 1X/DAY (AT NIGHT)
     Route: 048
  12. HYDROCODONE [Suspect]
     Active Substance: HYDROCODONE
     Indication: BURNING SENSATION
  13. ONE-A-DAY [Concomitant]
     Dosage: 1 DF, 1X/DAY
     Route: 048
  14. VITAMIN D [Concomitant]
     Active Substance: CHOLECALCIFEROL
     Dosage: 1000 MG, 1X/DAY
     Route: 048
  15. SPIRONOLACTONE. [Concomitant]
     Active Substance: SPIRONOLACTONE
     Dosage: 12.5 MG, DAILY (25MG, ONE HALF OF A TABLET BY MOUTH A DAY)
     Route: 048

REACTIONS (9)
  - Dizziness [Recovered/Resolved]
  - Pain in extremity [Unknown]
  - Euphoric mood [Recovered/Resolved]
  - Somnolence [Recovered/Resolved]
  - Hypersomnia [Unknown]
  - Drug ineffective [Unknown]
  - Gait disturbance [Unknown]
  - Back pain [Unknown]
  - Drug intolerance [Unknown]

NARRATIVE: CASE EVENT DATE: 20150419
